FAERS Safety Report 24529921 (Version 2)
Quarter: 2024Q4

REPORT INFORMATION
  Report Type: Spontaneous
  Country: US (occurrence: US)
  Receive Date: 20241021
  Receipt Date: 20241022
  Transmission Date: 20250114
  Serious: No
  Sender: PFIZER
  Company Number: US-PFIZER INC-202400279483

PATIENT
  Age: 80 Year
  Sex: Female
  Weight: 48.99 kg

DRUGS (1)
  1. IBRANCE [Suspect]
     Active Substance: PALBOCICLIB
     Dosage: 75 MG

REACTIONS (5)
  - Nasopharyngitis [Not Recovered/Not Resolved]
  - Oropharyngeal pain [Recovering/Resolving]
  - White blood cell count decreased [Unknown]
  - Respiratory disorder [Unknown]
  - Cough [Unknown]

NARRATIVE: CASE EVENT DATE: 20240101
